FAERS Safety Report 5201985-6 (Version None)
Quarter: 2007Q1

REPORT INFORMATION
  Report Type: 
  Country: None (occurrence: None)
  Receive Date: 20070109
  Receipt Date: 20070103
  Transmission Date: 20070707
  Serious: Yes (Other)
  Sender: FDA-Public Use
  Company Number: US-JNJFOC-20070100820

PATIENT
  Age: 74 Year
  Sex: Female
  Weight: 79.83 kg

DRUGS (8)
  1. REMICADE [Suspect]
     Route: 042
  2. REMICADE [Suspect]
     Indication: RHEUMATOID ARTHRITIS
     Route: 042
  3. ARAVA [Concomitant]
  4. CELEBREX [Concomitant]
  5. DIOVAN HCT [Concomitant]
  6. DETROL [Concomitant]
  7. SPIRONOLACTONE [Concomitant]
  8. GEMFIBROZIL [Concomitant]

REACTIONS (1)
  - ADENOID CYSTIC CARCINOMA [None]
